FAERS Safety Report 10174869 (Version 1)
Quarter: 2014Q2

REPORT INFORMATION
  Report Type: Spontaneous
  Country: US (occurrence: US)
  Receive Date: 20140515
  Receipt Date: 20140515
  Transmission Date: 20141212
  Serious: No
  Sender: FDA-Public Use
  Company Number: US-PFIZER INC-2014130383

PATIENT
  Age: 71 Year
  Sex: Female
  Weight: 71.2 kg

DRUGS (2)
  1. ADVIL [Suspect]
     Indication: INFLAMMATION
     Dosage: UNK, FOUR TIMES A DAY
     Route: 048
     Dates: start: 20140430
  2. PREMPRO [Concomitant]
     Dosage: 0.3/1.5 UNK, ONCE A DAY

REACTIONS (3)
  - Dizziness [Not Recovered/Not Resolved]
  - Headache [Not Recovered/Not Resolved]
  - Gait disturbance [Unknown]
